FAERS Safety Report 23492716 (Version 2)
Quarter: 2024Q1

REPORT INFORMATION
  Report Type: Spontaneous
  Country: AU (occurrence: AU)
  Receive Date: 20240207
  Receipt Date: 20240329
  Transmission Date: 20240410
  Serious: Yes (Other)
  Sender: FDA-Public Use
  Company Number: AU-ASTELLAS-2024US003537

PATIENT
  Age: 85 Year
  Sex: Male
  Weight: 102 kg

DRUGS (2)
  1. ENZALUTAMIDE [Suspect]
     Active Substance: ENZALUTAMIDE
     Indication: Prostate cancer
     Route: 048
     Dates: start: 20231121
  2. TALZENNA [Concomitant]
     Active Substance: TALAZOPARIB TOSYLATE
     Indication: Prostate cancer metastatic
     Dosage: 0.5 MG, ONCE DAILY
     Route: 048
     Dates: start: 20231103

REACTIONS (1)
  - Anaemia [Recovering/Resolving]

NARRATIVE: CASE EVENT DATE: 20240103
